FAERS Safety Report 17047328 (Version 1)
Quarter: 2019Q4

REPORT INFORMATION
  Report Type: Spontaneous
  Country: PT (occurrence: PT)
  Receive Date: 20191119
  Receipt Date: 20191119
  Transmission Date: 20200122
  Serious: Yes (Disabling, Other)
  Sender: FDA-Public Use
  Company Number: NVSC2019PT037871

PATIENT
  Age: 76 Year
  Sex: Male

DRUGS (1)
  1. LAMISIL [Suspect]
     Active Substance: TERBINAFINE HYDROCHLORIDE
     Indication: TINEA PEDIS
     Dosage: 1 DF (SINGLE APPLICATION, IN TOTAL)
     Route: 061
     Dates: start: 20190525

REACTIONS (3)
  - Dermatitis contact [Recovered/Resolved]
  - Pseudomonas infection [Recovered/Resolved]
  - Skin ulcer [Recovered/Resolved]

NARRATIVE: CASE EVENT DATE: 20190525
